FAERS Safety Report 8904361 (Version 3)
Quarter: 2013Q2

REPORT INFORMATION
  Report Type: Spontaneous
  Country: US (occurrence: US)
  Receive Date: 20121112
  Receipt Date: 20130508
  Transmission Date: 20140414
  Serious: No
  Sender: FDA-Public Use
  Company Number: US-009507513-1211USA001193

PATIENT
  Age: 37 Year
  Sex: Male

DRUGS (3)
  1. PEGINTRON [Suspect]
     Indication: HEPATITIS C
     Dosage: 150 MICROGRAM, QW
     Dates: start: 20121024
  2. RIBASPHERE [Suspect]
     Dosage: UNK
     Dates: start: 20121024
  3. TELAPREVIR [Suspect]
     Dosage: UNK
     Dates: start: 20121024

REACTIONS (2)
  - Vomiting [Unknown]
  - Nausea [Unknown]
